FAERS Safety Report 24993417 (Version 1)
Quarter: 2025Q1

REPORT INFORMATION
  Report Type: Spontaneous
  Country: FR (occurrence: FR)
  Receive Date: 20250221
  Receipt Date: 20250221
  Transmission Date: 20250409
  Serious: Yes (Hospitalization, Other)
  Sender: ASTELLAS
  Company Number: None

PATIENT
  Age: 58 Year
  Sex: Male
  Weight: 102 kg

DRUGS (1)
  1. PROGRAF [Suspect]
     Active Substance: TACROLIMUS
     Indication: Transplant rejection
     Dosage: 3 MG TWICE PER DAY
     Route: 048
     Dates: start: 20240325, end: 20250114

REACTIONS (2)
  - Hallucinations, mixed [Recovered/Resolved]
  - Persecutory delusion [Recovered/Resolved]

NARRATIVE: CASE EVENT DATE: 20241225
